FAERS Safety Report 7950362-3 (Version None)
Quarter: 2011Q4

REPORT INFORMATION
  Report Type: 
  Country: None (occurrence: None)
  Receive Date: 20111130
  Receipt Date: 20111118
  Transmission Date: 20120403
  Serious: Yes (Hospitalization)
  Sender: FDA-Public Use
  Company Number: US-BAYER-2011-077212

PATIENT
  Age: 19 Year
  Sex: Female
  Weight: 67.12 kg

DRUGS (6)
  1. SYNTHROID [Concomitant]
     Dosage: UNK
     Dates: start: 20040101
  2. ZITHROMAX [Concomitant]
  3. ZYRTEC [Concomitant]
  4. ERYTHROCIN LACTOBIONATE [Concomitant]
     Dosage: UNK
     Dates: start: 20090501
  5. DIFFERIN [Concomitant]
     Dosage: 0.1 %, PRN
  6. YAZ [Suspect]
     Indication: ACNE
     Dosage: UNK
     Route: 048
     Dates: start: 20090401, end: 20090601

REACTIONS (5)
  - ANHEDONIA [None]
  - DEFORMITY [None]
  - PAIN [None]
  - ANXIETY [None]
  - DEEP VEIN THROMBOSIS [None]
